FAERS Safety Report 6686038-2 (Version None)
Quarter: 2010Q2

REPORT INFORMATION
  Report Type: 
  Country: None (occurrence: None)
  Receive Date: 20100414
  Receipt Date: 20100403
  Transmission Date: 20101027
  Serious: Yes (Hospitalization)
  Sender: FDA-Public Use
  Company Number: 1000013056

PATIENT
  Age: 79 Year
  Sex: Male
  Weight: 61 kg

DRUGS (10)
  1. MEMANTINE HCL [Suspect]
     Dosage: 10 MG (10 MG, 1 IN 1 D), ORAL
     Route: 048
  2. BROMAZEPAM (TABLETS) [Suspect]
     Dosage: 1 DOSAGE FORMS (1 DOSAGE FORMS, 1 IN 1 D), O RAL
     Route: 048
  3. LISIBETA (TABLETS) [Suspect]
     Dosage: 40 MG (40 MG, 1 IN 1 D), ORAL
     Route: 048
  4. METOHEXAL RETARD (TABLETS) [Suspect]
     Dosage: 47.5 MG (47.5 MG, 1 IN 1 D), ORAL
     Route: 048
  5. MOXOBETA (TABLETS) [Suspect]
     Dosage: 0.4 MG (0.4 MG, 1 IN 1 D), ORAL
     Route: 048
  6. NIFEDIPINE [Suspect]
     Dosage: 10 MG (10 MG, 1 IN 1 D), ORAL
     Route: 048
  7. RAMIPRIL [Suspect]
     Dosage: 20 MG (20 MG, 1 IN 1 D), ORAL
     Route: 048
  8. RISPERIDONE [Suspect]
     Dosage: 1 DOSAGE FORMS (1 DOSAGE FORMS, 1 IN 1 D), ORAL
     Route: 048
  9. TORSEMIDE [Suspect]
     Dosage: 10 MG (10 MG, 1 IN 1 D), ORAL
     Route: 048
  10. TRANXILIUM (TABLETS) [Suspect]
     Dosage: 10 MG (10 MG, 1 IN 1 D), ORAL
     Route: 048

REACTIONS (4)
  - DIZZINESS [None]
  - DYSARTHRIA [None]
  - MEDICATION ERROR [None]
  - SOMNOLENCE [None]
